FAERS Safety Report 7755241-2 (Version None)
Quarter: 2011Q3

REPORT INFORMATION
  Report Type: 
  Country: None (occurrence: None)
  Receive Date: 20110914
  Receipt Date: 20110901
  Transmission Date: 20111222
  Serious: Yes (Disabling, Other)
  Sender: FDA-Public Use
  Company Number: DEP_00514_2011

PATIENT
  Age: 69 Year
  Sex: Female

DRUGS (3)
  1. GABAPENTIN [Suspect]
     Indication: PARAESTHESIA
     Dosage: 900 MG, DAILY; 300 MG, DAILY; 600 MG, DAILY;
  2. GABAPENTIN [Suspect]
     Indication: PARAESTHESIA
     Dosage: 900 MG, DAILY; 300 MG, DAILY; 600 MG, DAILY;
  3. TRAMADOL HCL [Suspect]
     Indication: PARAESTHESIA
     Dosage: DF

REACTIONS (4)
  - MYOCLONUS [None]
  - APHAGIA [None]
  - FLUID INTAKE REDUCED [None]
  - ACTIVITIES OF DAILY LIVING IMPAIRED [None]
